FAERS Safety Report 9662452 (Version 1)
Quarter: 2013Q4

REPORT INFORMATION
  Report Type: Spontaneous
  Country: US (occurrence: US)
  Receive Date: 20131031
  Receipt Date: 20131031
  Transmission Date: 20140711
  Serious: No
  Sender: FDA-Public Use
  Company Number: US-PURDUE-USA-2011-0073060

PATIENT
  Sex: Female

DRUGS (2)
  1. OXYCONTIN (NDA 22-272) [Suspect]
     Indication: ARTHRITIS
     Dosage: 10 MG, TID
  2. OXYCONTIN (NDA 22-272) [Suspect]
     Dosage: 5 MG, TID

REACTIONS (3)
  - Wrong technique in drug usage process [Unknown]
  - Disturbance in attention [Not Recovered/Not Resolved]
  - Inadequate analgesia [Not Recovered/Not Resolved]
